FAERS Safety Report 26059328 (Version 1)
Quarter: 2025Q4

REPORT INFORMATION
  Report Type: Spontaneous
  Country: US (occurrence: US)
  Receive Date: 20251118
  Receipt Date: 20251118
  Transmission Date: 20260118
  Serious: Yes (Hospitalization)
  Sender: MYLAN
  Company Number: US-MYLANLABS-2025M1096574

PATIENT
  Age: 11 Year
  Sex: Male

DRUGS (16)
  1. CLONIDINE [Suspect]
     Active Substance: CLONIDINE
     Indication: Attention deficit hyperactivity disorder
     Dosage: 0.1 MILLIGRAM, QD
     Route: 065
  2. CLONIDINE [Suspect]
     Active Substance: CLONIDINE
     Dosage: 0.1 MILLIGRAM, QD
  3. CLONIDINE [Suspect]
     Active Substance: CLONIDINE
     Dosage: 0.1 MILLIGRAM, QD
  4. CLONIDINE [Suspect]
     Active Substance: CLONIDINE
     Dosage: 0.1 MILLIGRAM, QD
     Route: 065
  5. CLONIDINE [Suspect]
     Active Substance: CLONIDINE
     Dosage: UNK; LATER CLONIDINE RESTARTED
     Route: 065
  6. CLONIDINE [Suspect]
     Active Substance: CLONIDINE
     Dosage: UNK; LATER CLONIDINE RESTARTED
  7. CLONIDINE [Suspect]
     Active Substance: CLONIDINE
     Dosage: UNK; LATER CLONIDINE RESTARTED
  8. CLONIDINE [Suspect]
     Active Substance: CLONIDINE
     Dosage: UNK; LATER CLONIDINE RESTARTED
     Route: 065
  9. LISDEXAMFETAMINE [Suspect]
     Active Substance: LISDEXAMFETAMINE
     Indication: Attention deficit hyperactivity disorder
     Dosage: 30 MILLIGRAM, QD
  10. LISDEXAMFETAMINE [Suspect]
     Active Substance: LISDEXAMFETAMINE
     Dosage: 30 MILLIGRAM, QD
     Route: 065
  11. LISDEXAMFETAMINE [Suspect]
     Active Substance: LISDEXAMFETAMINE
     Dosage: 30 MILLIGRAM, QD
     Route: 065
  12. LISDEXAMFETAMINE [Suspect]
     Active Substance: LISDEXAMFETAMINE
     Dosage: 30 MILLIGRAM, QD
  13. GUANFACINE [Suspect]
     Active Substance: GUANFACINE
     Indication: Attention deficit hyperactivity disorder
     Dosage: 3 MILLIGRAM, QD
  14. GUANFACINE [Suspect]
     Active Substance: GUANFACINE
     Dosage: 3 MILLIGRAM, QD
     Route: 065
  15. GUANFACINE [Suspect]
     Active Substance: GUANFACINE
     Dosage: 3 MILLIGRAM, QD
     Route: 065
  16. GUANFACINE [Suspect]
     Active Substance: GUANFACINE
     Dosage: 3 MILLIGRAM, QD

REACTIONS (5)
  - Withdrawal syndrome [Recovering/Resolving]
  - Sinus tachycardia [Recovering/Resolving]
  - Hypertensive urgency [Recovering/Resolving]
  - Hypertension [Recovering/Resolving]
  - Product use in unapproved indication [Unknown]
